FAERS Safety Report 4327596-2 (Version None)
Quarter: 2004Q1

REPORT INFORMATION
  Report Type: 
  Country: None (occurrence: None)
  Receive Date: 20040325
  Receipt Date: 20040309
  Transmission Date: 20041129
  Serious: No
  Sender: FDA-Public Use
  Company Number: RS004294-CDN

PATIENT
  Sex: Female
  Weight: 91 kg

DRUGS (2)
  1. RABEPRAZOLE SODIUM [Suspect]
     Dosage: 20 MG, 1 IN 1 D, ORAL
     Route: 048
  2. WARFARIN SODIUM [Suspect]
     Dosage: 2.5 MG, 1 IN 1 D, ORAL
     Route: 048

REACTIONS (2)
  - DRUG LEVEL BELOW THERAPEUTIC [None]
  - INTERNATIONAL NORMALISED RATIO DECREASED [None]
